FAERS Safety Report 9845987 (Version 1)
Quarter: 2013Q4

REPORT INFORMATION
  Report Type: Spontaneous
  Country: US (occurrence: None)
  Receive Date: 20131219
  Receipt Date: 20131219
  Transmission Date: 20140711
  Serious: Yes (Death)
  Sender: FDA-Public Use
  Company Number: 163-20785-13034740

PATIENT
  Age: 51 Year
  Sex: Male

DRUGS (7)
  1. THALOMID (THALIDOMIDE) (200 MILLIGRAM, CAPSULES) [Suspect]
     Indication: GLIOBLASTOMA
     Route: 048
     Dates: start: 20120501
  2. CELEXA(CITALOPRAM HYDROBROMIDE)(TABLETS) [Concomitant]
  3. CYCLOPHOSPHAMIDE(CYCLOPHOSPHAMIDE)(UNKNOWN) [Concomitant]
  4. KEPPRA(LEVETIRACETAM)(1000 MILLIGRAM, TABLETS) [Concomitant]
  5. PRILOSEC(OMEPRAZOLE)(20 MILLIGRAM, CAPSULES) [Concomitant]
  6. SIMVASTATIN(SIMVASTATIN)(40 MILLIGRAM, TABLETS) [Concomitant]
  7. TEMODAR(TEMOZOLOMIDE)(100 MILLIGRAM, CAPSULES) [Concomitant]

REACTIONS (2)
  - Glioblastoma [None]
  - Disease progression [None]
